FAERS Safety Report 10519031 (Version 2)
Quarter: 2014Q4

REPORT INFORMATION
  Report Type: Spontaneous
  Country: JP (occurrence: JP)
  Receive Date: 20141015
  Receipt Date: 20141015
  Transmission Date: 20150528
  Serious: Yes (Hospitalization, Other)
  Sender: FDA-Public Use
  Company Number: PHHY2014JP095432

PATIENT
  Age: 41 Year
  Sex: Male
  Weight: 90 kg

DRUGS (12)
  1. LITHIUM CARBONATE. [Concomitant]
     Active Substance: LITHIUM CARBONATE
     Indication: IMPULSIVE BEHAVIOUR
     Dosage: 800 MG, UNK
     Route: 048
     Dates: start: 20140123
  2. FLUNITRAZEPAM [Concomitant]
     Active Substance: FLUNITRAZEPAM
     Indication: INSOMNIA
     Dosage: 2 MG, UNK
     Route: 048
     Dates: start: 20000926, end: 20140726
  3. ZOPICLONE [Concomitant]
     Active Substance: ZOPICLONE
     Indication: INITIAL INSOMNIA
     Dosage: 7.5 MG, UNK
     Route: 048
     Dates: start: 20140808
  4. VALPROIC ACID. [Concomitant]
     Active Substance: VALPROIC ACID
     Dosage: 200 MG, UNK
  5. BROTIZOLAM [Concomitant]
     Active Substance: BROTIZOLAM
     Indication: INITIAL INSOMNIA
     Dosage: 0.25 MG, UNK
     Route: 048
     Dates: start: 20140606, end: 20140826
  6. BIPERIDEN HYDROCHLORIDE [Concomitant]
     Active Substance: BIPERIDEN HYDROCHLORIDE
     Indication: PRODUCT USED FOR UNKNOWN INDICATION
     Dosage: 3 MG, UNK
     Route: 048
     Dates: start: 20000926, end: 20140806
  7. CLOZARIL [Suspect]
     Active Substance: CLOZAPINE
     Dosage: 100 MG, DAILY
     Route: 048
     Dates: start: 20140724, end: 20140725
  8. DEPAKENE [Suspect]
     Active Substance: VALPROIC ACID
     Indication: IMPULSIVE BEHAVIOUR
     Dosage: 1000 MG, DAILY
     Route: 048
     Dates: start: 20060911, end: 20140730
  9. ABILIFY [Concomitant]
     Active Substance: ARIPIPRAZOLE
     Indication: SCHIZOPHRENIA
     Dosage: 24 MG, UNK
     Route: 048
     Dates: start: 20080507
  10. HIRNAMIN [Concomitant]
     Active Substance: PHENOTHIAZINE
     Indication: SEDATION
     Dosage: 25 MG, UNK
     Route: 048
     Dates: start: 20000926
  11. VALPROIC ACID. [Concomitant]
     Active Substance: VALPROIC ACID
     Indication: PRODUCT USED FOR UNKNOWN INDICATION
     Dosage: 100 MG, UNK
     Route: 065
  12. CLOZARIL [Suspect]
     Active Substance: CLOZAPINE
     Indication: SCHIZOPHRENIA
     Dosage: 200 MG, DAILY
     Route: 048
     Dates: start: 20140711, end: 20140723

REACTIONS (20)
  - Blood creatinine abnormal [Not Recovered/Not Resolved]
  - Liver disorder [Unknown]
  - Orthopnoea [Unknown]
  - Aspartate aminotransferase increased [Unknown]
  - Beta-N-acetyl-D-glucosaminidase increased [Unknown]
  - Lymphocyte count decreased [Unknown]
  - Blood urea decreased [Unknown]
  - Pneumonia aspiration [Unknown]
  - Eosinophil count increased [Unknown]
  - Alanine aminotransferase increased [Unknown]
  - Cardiac failure [Unknown]
  - Cardiomegaly [Unknown]
  - Infection [Unknown]
  - White blood cell count increased [Not Recovered/Not Resolved]
  - Neutrophil count increased [Not Recovered/Not Resolved]
  - C-reactive protein increased [Unknown]
  - Oxygen saturation decreased [Unknown]
  - Lung disorder [Unknown]
  - Tubulointerstitial nephritis [Recovered/Resolved]
  - Pyrexia [Unknown]

NARRATIVE: CASE EVENT DATE: 20140723
